FAERS Safety Report 24109555 (Version 1)
Quarter: 2024Q3

REPORT INFORMATION
  Report Type: Spontaneous
  Country: US (occurrence: US)
  Receive Date: 20240718
  Receipt Date: 20240718
  Transmission Date: 20241017
  Serious: No
  Sender: PFIZER
  Company Number: US-PFIZER INC-202400217712

PATIENT
  Age: 60 Year
  Sex: Female
  Weight: 61.69 kg

DRUGS (1)
  1. PAXLOVID [Suspect]
     Active Substance: NIRMATRELVIR\RITONAVIR
     Indication: COVID-19 treatment
     Dosage: UNK
     Dates: start: 20240712

REACTIONS (2)
  - Genital discomfort [Unknown]
  - Genital rash [Unknown]

NARRATIVE: CASE EVENT DATE: 20240716
